FAERS Safety Report 8983072 (Version 1)
Quarter: 2012Q4

REPORT INFORMATION
  Report Type: 
  Country: FR (occurrence: FR)
  Receive Date: 20121224
  Receipt Date: 20121224
  Transmission Date: 20130627
  Serious: Yes (Other)
  Sender: FDA-Public Use
  Company Number: FR-009507513-1212FRA005661

PATIENT
  Age: 55 Year
  Weight: 88 kg

DRUGS (1)
  1. INVANZ [Suspect]
     Dosage: 1 g, bid
     Route: 058

REACTIONS (1)
  - Encephalopathy [Unknown]
